FAERS Safety Report 22042231 (Version 11)
Quarter: 2024Q1

REPORT INFORMATION
  Report Type: Spontaneous
  Country: CZ (occurrence: CZ)
  Receive Date: 20230227
  Receipt Date: 20240328
  Transmission Date: 20240410
  Serious: Yes (Hospitalization, Other)
  Sender: FDA-Public Use
  Company Number: None

PATIENT
  Age: 53 Year
  Sex: Female

DRUGS (50)
  1. TOPIRAMATE [Suspect]
     Active Substance: TOPIRAMATE
     Indication: Migraine with aura
     Dosage: UNK
     Route: 048
  2. TOPIRAMATE [Suspect]
     Active Substance: TOPIRAMATE
     Indication: Migraine without aura
     Dosage: UNK
     Route: 048
  3. TOPIRAMATE [Suspect]
     Active Substance: TOPIRAMATE
     Indication: Migraine
     Dosage: UNK
     Route: 065
  4. AMITRIPTYLINE [Suspect]
     Active Substance: AMITRIPTYLINE
     Indication: Migraine
     Dosage: 25 MILLIGRAM, QD (25 MG 1X PER DAY)
     Route: 065
  5. AMITRIPTYLINE [Suspect]
     Active Substance: AMITRIPTYLINE
     Indication: Migraine with aura
     Dosage: UNK
     Route: 065
  6. AMITRIPTYLINE [Suspect]
     Active Substance: AMITRIPTYLINE
     Indication: Migraine without aura
     Dosage: 25 MILLIGRAM, QD (25 MG 1X PER DAY)
     Route: 065
  7. IBUPROFEN [Suspect]
     Active Substance: IBUPROFEN
     Indication: Migraine without aura
     Dosage: UNK
     Route: 048
  8. IBUPROFEN [Suspect]
     Active Substance: IBUPROFEN
     Dosage: UNK, GRADUALLY INCREASED
     Route: 048
  9. TRAMADOL [Suspect]
     Active Substance: TRAMADOL\TRAMADOL HYDROCHLORIDE
     Indication: Migraine without aura
     Dosage: UNK
     Route: 048
  10. TRAMADOL [Suspect]
     Active Substance: TRAMADOL\TRAMADOL HYDROCHLORIDE
     Dosage: UNK, GRADUALLY INCREASED
     Route: 048
  11. TRAMADOL [Suspect]
     Active Substance: TRAMADOL\TRAMADOL HYDROCHLORIDE
     Dosage: GRADUALLY INCREASED
     Route: 065
  12. TRAMADOL [Suspect]
     Active Substance: TRAMADOL\TRAMADOL HYDROCHLORIDE
     Dosage: UNK
     Route: 065
  13. TRAMADOL [Suspect]
     Active Substance: TRAMADOL\TRAMADOL HYDROCHLORIDE
     Dosage: UNK
     Route: 065
  14. TRAMADOL [Suspect]
     Active Substance: TRAMADOL\TRAMADOL HYDROCHLORIDE
     Dosage: GRADUALLY INCREASED
     Route: 065
  15. TRAMADOL [Suspect]
     Active Substance: TRAMADOL\TRAMADOL HYDROCHLORIDE
     Dosage: UNK
     Route: 065
  16. GABAPENTIN [Suspect]
     Active Substance: GABAPENTIN
     Indication: Migraine
     Dosage: 1500 MG, QD (500 MG, TID (3X500 MG A DAY))
     Route: 065
  17. GABAPENTIN [Suspect]
     Active Substance: GABAPENTIN
     Indication: Migraine with aura
  18. GABAPENTIN [Suspect]
     Active Substance: GABAPENTIN
     Indication: Migraine without aura
  19. LEVETIRACETAM [Suspect]
     Active Substance: LEVETIRACETAM
     Indication: Migraine
     Dosage: UNK
     Route: 065
  20. LEVETIRACETAM [Suspect]
     Active Substance: LEVETIRACETAM
     Indication: Migraine with aura
     Dosage: UNK
     Route: 065
  21. LEVETIRACETAM [Suspect]
     Active Substance: LEVETIRACETAM
     Indication: Migraine without aura
  22. TOPAMAX [Suspect]
     Active Substance: TOPIRAMATE
     Indication: Migraine
     Dosage: UNK
     Route: 048
  23. TOPAMAX [Suspect]
     Active Substance: TOPIRAMATE
     Dosage: UNK
     Route: 048
  24. DIHYDROERGOTAMINE [Suspect]
     Active Substance: DIHYDROERGOTAMINE
     Indication: Migraine without aura
     Dosage: UNK, GRADUALLY INCREASED
     Route: 042
  25. DIHYDROERGOTAMINE [Suspect]
     Active Substance: DIHYDROERGOTAMINE
     Indication: Migraine
     Dosage: GRADUALLY INCREASED
     Route: 065
  26. DIHYDROERGOTAMINE [Suspect]
     Active Substance: DIHYDROERGOTAMINE
     Dosage: UNK
     Route: 048
  27. DIHYDROERGOTAMINE [Suspect]
     Active Substance: DIHYDROERGOTAMINE
     Dosage: UNK
     Route: 042
  28. DIHYDROERGOTAMINE [Suspect]
     Active Substance: DIHYDROERGOTAMINE
     Dosage: UNK
     Route: 042
  29. DIHYDROERGOTAMINE [Suspect]
     Active Substance: DIHYDROERGOTAMINE
     Dosage: UNK
     Route: 042
  30. DIHYDROERGOTAMINE [Suspect]
     Active Substance: DIHYDROERGOTAMINE
     Dosage: UNK
     Route: 065
  31. DIHYDROERGOTAMINE [Suspect]
     Active Substance: DIHYDROERGOTAMINE
     Dosage: UNK
     Route: 065
  32. DIHYDROERGOTAMINE [Suspect]
     Active Substance: DIHYDROERGOTAMINE
     Dosage: UNK
     Route: 065
  33. METOPROLOL [Suspect]
     Active Substance: METOPROLOL
     Indication: Migraine
     Dosage: 50 MILLIGRAM, BID (2X50 MG)
     Route: 065
  34. METOPROLOL [Suspect]
     Active Substance: METOPROLOL
     Indication: Migraine without aura
     Dosage: 100 MG, QD (50 MG, BID (2X50 MG))
     Route: 065
  35. METOPROLOL [Suspect]
     Active Substance: METOPROLOL
     Dosage: 100 MILLIGRAM, BID (2X100 MG A DAY)
     Route: 065
  36. VALPROATE [Suspect]
     Active Substance: VALPROIC ACID
     Indication: Migraine with aura
     Dosage: 300 MILLIGRAM, 1X/DAY
     Route: 065
  37. VALPROATE [Suspect]
     Active Substance: VALPROIC ACID
     Indication: Prophylaxis
     Dosage: 3X300 MG A DAY
     Route: 065
  38. VALPROATE [Suspect]
     Active Substance: VALPROIC ACID
     Indication: Migraine without aura
     Dosage: UNK
     Route: 065
  39. VALPROATE [Suspect]
     Active Substance: VALPROIC ACID
     Indication: Migraine without aura
  40. OXETORONE [Concomitant]
     Active Substance: OXETORONE
     Indication: Migraine without aura
     Dosage: UNK
     Route: 065
  41. OXETORONE [Concomitant]
     Active Substance: OXETORONE
     Dosage: UNK
     Route: 065
  42. OXETORONE [Concomitant]
     Active Substance: OXETORONE
     Dosage: UNK
     Route: 065
  43. TOPIRAMATE [Concomitant]
     Active Substance: TOPIRAMATE
     Indication: Migraine
     Dosage: UNK
     Route: 048
  44. TOPIRAMATE [Concomitant]
     Active Substance: TOPIRAMATE
     Indication: Migraine with aura
     Dosage: UNK
     Route: 048
  45. TOPIRAMATE [Concomitant]
     Active Substance: TOPIRAMATE
     Indication: Migraine without aura
     Dosage: UNK
     Route: 065
  46. AMITRIPTYLINE [Concomitant]
     Active Substance: AMITRIPTYLINE
     Indication: Migraine
     Dosage: 25 MILLIGRAM, QD (25 MG 1X PER DAY)
     Route: 065
  47. AMITRIPTYLINE [Concomitant]
     Active Substance: AMITRIPTYLINE
     Indication: Migraine with aura
     Dosage: UNK
     Route: 065
  48. AMITRIPTYLINE [Concomitant]
     Active Substance: AMITRIPTYLINE
     Indication: Migraine without aura
  49. FLUNARIZINE [Concomitant]
     Active Substance: FLUNARIZINE
     Indication: Migraine without aura
     Dosage: UNK
     Route: 065
  50. FLUNARIZINE [Concomitant]
     Active Substance: FLUNARIZINE
     Dosage: UNK

REACTIONS (17)
  - Intentional product misuse [Recovered/Resolved]
  - Withdrawal syndrome [Recovered/Resolved]
  - Loss of consciousness [Recovered/Resolved]
  - Hypotension [Recovered/Resolved]
  - Syncope [Recovered/Resolved]
  - Circulatory collapse [Unknown]
  - Toxicity to various agents [Recovered/Resolved]
  - Drug abuse [Recovered/Resolved]
  - Drug dependence [Unknown]
  - Drug withdrawal syndrome [Unknown]
  - Drug dependence [Unknown]
  - Therapy partial responder [Unknown]
  - Drug ineffective [Recovered/Resolved]
  - Drug intolerance [Recovered/Resolved]
  - Therapeutic product effect incomplete [Recovered/Resolved]
  - Overdose [Unknown]
  - Off label use [Unknown]
